FAERS Safety Report 18788990 (Version 1)
Quarter: 2021Q1

REPORT INFORMATION
  Report Type: Spontaneous
  Country: GB (occurrence: GB)
  Receive Date: 20210126
  Receipt Date: 20210126
  Transmission Date: 20210419
  Serious: Yes (Other)
  Sender: FDA-Public Use
  Company Number: GB-MYLANLABS-2021M1003941

PATIENT
  Age: 12 Year

DRUGS (5)
  1. FOLIC ACID. [Concomitant]
     Active Substance: FOLIC ACID
     Dosage: 2.5MG/5ML
     Route: 048
  2. SYTRON [Concomitant]
     Dosage: UNK
     Route: 048
  3. VANCOMYCIN [Suspect]
     Active Substance: VANCOMYCIN
     Indication: PRODUCT USED FOR UNKNOWN INDICATION
     Dosage: 350 MILLIGRAM, Q6H
     Dates: start: 20210106, end: 20210106
  4. PARACETAMOL [Concomitant]
     Active Substance: ACETAMINOPHEN
     Dosage: 250MG/5ML
     Route: 048
  5. ENOXAPARIN SODIUM. [Concomitant]
     Active Substance: ENOXAPARIN SODIUM
     Dosage: 20MG/0.2ML

REACTIONS (3)
  - Alpha haemolytic streptococcal infection [Unknown]
  - Endocarditis [Unknown]
  - Red man syndrome [Recovered/Resolved]

NARRATIVE: CASE EVENT DATE: 20210106
